FAERS Safety Report 11732574 (Version 4)
Quarter: 2018Q1

REPORT INFORMATION
  Report Type: Report from Study
  Country: DE (occurrence: DE)
  Receive Date: 20151113
  Receipt Date: 20180116
  Transmission Date: 20180508
  Serious: Yes (Hospitalization, Other)
  Sender: FDA-Public Use
  Company Number: DE-ROCHE-1633192

PATIENT
  Age: 76 Year
  Sex: Male
  Weight: 73 kg

DRUGS (5)
  1. ESBRIET [Suspect]
     Active Substance: PIRFENIDONE
     Dosage: 3 - 2  - 2
     Route: 048
     Dates: start: 20150910
  2. ESBRIET [Suspect]
     Active Substance: PIRFENIDONE
     Route: 048
     Dates: start: 20150717, end: 20150910
  3. ESBRIET [Suspect]
     Active Substance: PIRFENIDONE
     Route: 048
     Dates: start: 20170924
  4. ESBRIET [Suspect]
     Active Substance: PIRFENIDONE
     Indication: IDIOPATHIC PULMONARY FIBROSIS
     Route: 048
     Dates: start: 20150202, end: 20150717
  5. ESBRIET [Suspect]
     Active Substance: PIRFENIDONE
     Route: 048
     Dates: start: 20170914, end: 20170923

REACTIONS (7)
  - General physical health deterioration [Not Recovered/Not Resolved]
  - Abdominal pain upper [Recovering/Resolving]
  - Respiratory tract infection [Unknown]
  - Gastrointestinal disorder [Recovered/Resolved]
  - Lung disorder [Unknown]
  - Dyspnoea exertional [Not Recovered/Not Resolved]
  - Myalgia [Recovering/Resolving]

NARRATIVE: CASE EVENT DATE: 201506
